FAERS Safety Report 22285235 (Version 1)
Quarter: 2023Q2

REPORT INFORMATION
  Report Type: Spontaneous
  Country: US (occurrence: US)
  Receive Date: 20230504
  Receipt Date: 20230504
  Transmission Date: 20230721
  Serious: No
  Sender: FDA-Public Use
  Company Number: US-BRISTOL-MYERS SQUIBB COMPANY-2023-063726

PATIENT
  Age: 50 Year
  Sex: Female
  Weight: 101.15 kg

DRUGS (1)
  1. REVLIMID [Suspect]
     Active Substance: LENALIDOMIDE
     Indication: Plasma cell myeloma
     Dosage: DAILY 1-14, THEN 14 DAYS OFF
     Route: 048
     Dates: start: 20210901, end: 20230401

REACTIONS (2)
  - Laboratory test abnormal [Unknown]
  - Off label use [Unknown]
